FAERS Safety Report 20825350 (Version 3)
Quarter: 2022Q2

REPORT INFORMATION
  Report Type: Report from Study
  Country: US (occurrence: US)
  Receive Date: 20220513
  Receipt Date: 20220630
  Transmission Date: 20220720
  Serious: Yes (Other)
  Sender: FDA-Public Use
  Company Number: US-TEVA-2022-US-2036197

PATIENT
  Age: 28 Year
  Sex: Female

DRUGS (2)
  1. CLARAVIS [Suspect]
     Active Substance: ISOTRETINOIN
     Indication: Product used for unknown indication
     Dosage: 60 MILLIGRAM DAILY;
     Route: 065
     Dates: start: 20210519, end: 2021
  2. Hormonal patch [Concomitant]
     Indication: Product used for unknown indication
     Route: 062

REACTIONS (2)
  - Unintended pregnancy [Unknown]
  - Abortion spontaneous [Recovered/Resolved]
